FAERS Safety Report 6994369-1 (Version None)
Quarter: 2010Q3

REPORT INFORMATION
  Report Type: 
  Country: None (occurrence: None)
  Receive Date: 20100917
  Receipt Date: 20100908
  Transmission Date: 20110219
  Serious: Yes (Other)
  Sender: FDA-Public Use
  Company Number: US-AMGEN-KDC436740

PATIENT

DRUGS (5)
  1. NEULASTA [Suspect]
     Indication: NON-HODGKIN'S LYMPHOMA
  2. RITUXIMAB [Suspect]
  3. CYCLOPHOSPHAMIDE [Suspect]
  4. BORTEZOMIB [Suspect]
  5. PREDNISONE [Suspect]

REACTIONS (13)
  - BLOOD BILIRUBIN [None]
  - BLOOD PHOSPHORUS DECREASED [None]
  - BLOOD POTASSIUM DECREASED [None]
  - FATIGUE [None]
  - FEBRILE NEUTROPENIA [None]
  - HAEMOGLOBIN DECREASED [None]
  - HYPOXIA [None]
  - LYMPHOPENIA [None]
  - NEUTROPHIL COUNT [None]
  - PERIPHERAL SENSORY NEUROPATHY [None]
  - PLATELET COUNT DECREASED [None]
  - PYREXIA [None]
  - WHITE BLOOD CELL COUNT [None]
